FAERS Safety Report 12939470 (Version 4)
Quarter: 2017Q1

REPORT INFORMATION
  Report Type: Spontaneous
  Country: US (occurrence: US)
  Receive Date: 20161115
  Receipt Date: 20170320
  Transmission Date: 20170428
  Serious: Yes (Hospitalization, Other)
  Sender: FDA-Public Use
  Company Number: US-PFIZER INC-2016526319

PATIENT
  Age: 60 Year
  Sex: Female

DRUGS (3)
  1. IBRANCE [Suspect]
     Active Substance: PALBOCICLIB
     Dosage: 100 MG, CYCLIC (DAILY X 21 DAYS/7 DAYS OFF)
     Route: 048
     Dates: start: 20160920
  2. ARIMIDEX [Concomitant]
     Active Substance: ANASTROZOLE
     Indication: OVARIAN CANCER
     Dosage: UNK
     Dates: start: 201403
  3. IBRANCE [Suspect]
     Active Substance: PALBOCICLIB
     Indication: OVARIAN CANCER METASTATIC
     Dosage: UNK UNK, 1X/DAY
     Dates: start: 201609

REACTIONS (3)
  - Intestinal obstruction [Recovered/Resolved]
  - Fatigue [Not Recovered/Not Resolved]
  - Product use issue [Unknown]

NARRATIVE: CASE EVENT DATE: 20160920
